FAERS Safety Report 17928873 (Version 2)
Quarter: 2020Q3

REPORT INFORMATION
  Report Type: Spontaneous
  Country: JP (occurrence: JP)
  Receive Date: 20200623
  Receipt Date: 20200724
  Transmission Date: 20201103
  Serious: Yes (Hospitalization)
  Sender: FDA-Public Use
  Company Number: JP-CELGENEUS-JPN-20200605490

PATIENT
  Age: 81 Year

DRUGS (2)
  1. TECENTRIQ [Concomitant]
     Active Substance: ATEZOLIZUMAB
     Indication: BREAST CANCER METASTATIC
     Route: 065
     Dates: start: 202001, end: 2020
  2. ABRAXANE [Suspect]
     Active Substance: PACLITAXEL
     Indication: BREAST CANCER METASTATIC
     Route: 041
     Dates: start: 202001, end: 2020

REACTIONS (2)
  - Malaise [Unknown]
  - Muscular weakness [Unknown]

NARRATIVE: CASE EVENT DATE: 202001
